FAERS Safety Report 20832464 (Version 1)
Quarter: 2022Q2

REPORT INFORMATION
  Report Type: 
  Country: None (occurrence: None)
  Receive Date: 20220516
  Receipt Date: 20220516
  Transmission Date: 20220721
  Serious: No
  Sender: FDA-Public Use
  Company Number: CA-ROCHE-3095455

PATIENT
  Weight: 77 kg

DRUGS (30)
  1. ADRIAMYCIN [Suspect]
     Active Substance: DOXORUBICIN HYDROCHLORIDE
  2. CYCLOPHOSPHAMIDE [Suspect]
     Active Substance: CYCLOPHOSPHAMIDE
  3. ONCOVIN [Suspect]
     Active Substance: VINCRISTINE SULFATE
  4. RITUXAN [Suspect]
     Active Substance: RITUXIMAB
     Dosage: THERAPY DURATION 21 DAYS
  5. ACETAMINOPHEN [Concomitant]
     Active Substance: ACETAMINOPHEN
  6. ALLOPURINOL [Concomitant]
     Active Substance: ALLOPURINOL
  7. AMLODIPINE [Concomitant]
     Active Substance: AMLODIPINE BESYLATE
  8. ASPIRIN [Concomitant]
     Active Substance: ASPIRIN
  9. BUDESONIDE [Concomitant]
     Active Substance: BUDESONIDE
  10. CALCIUM CARBONATE [Concomitant]
     Active Substance: CALCIUM CARBONATE
  11. DILTIAZEM [Concomitant]
     Active Substance: DILTIAZEM
  12. DIPHENHYDRAMINE [Concomitant]
     Active Substance: DIPHENHYDRAMINE
  13. ENOXAPARIN [Concomitant]
     Active Substance: ENOXAPARIN
  14. K-DUR [Concomitant]
     Active Substance: POTASSIUM CHLORIDE
  15. LEVOFLOXACIN [Concomitant]
     Active Substance: LEVOFLOXACIN
  16. LORAZEPAM [Concomitant]
     Active Substance: LORAZEPAM
  17. LOVENOX [Concomitant]
     Active Substance: ENOXAPARIN SODIUM
  18. POLYETHYLENE GLYCOL 3350 [Concomitant]
     Active Substance: POLYETHYLENE GLYCOL 3350
  19. MEROPENEM [Concomitant]
     Active Substance: MEROPENEM
  20. METOPROLOL [Concomitant]
     Active Substance: METOPROLOL
  21. MORPHINE [Concomitant]
     Active Substance: MORPHINE
  22. PANTOPRAZOLE [Concomitant]
     Active Substance: PANTOPRAZOLE
  23. UNSPECIFIED INGREDIENT [Concomitant]
     Active Substance: UNSPECIFIED INGREDIENT
  24. PREDNISONE [Concomitant]
     Active Substance: PREDNISONE
  25. PROCHLORPERAZINE [Concomitant]
     Active Substance: PROCHLORPERAZINE
  26. RIVAROXABAN [Concomitant]
     Active Substance: RIVAROXABAN
  27. ROSUVASTATIN [Concomitant]
     Active Substance: ROSUVASTATIN
  28. ALBUTEROL [Concomitant]
     Active Substance: ALBUTEROL
  29. SPIRIVA [Concomitant]
     Active Substance: TIOTROPIUM BROMIDE MONOHYDRATE
  30. FILGRASTIM [Concomitant]
     Active Substance: FILGRASTIM

REACTIONS (2)
  - Febrile neutropenia [None]
  - Tumour lysis syndrome [None]
